FAERS Safety Report 6042013-2 (Version None)
Quarter: 2009Q1

REPORT INFORMATION
  Report Type: 
  Country: None (occurrence: None)
  Receive Date: 20090116
  Receipt Date: 20090109
  Transmission Date: 20090719
  Serious: Yes (Other)
  Sender: FDA-Public Use
  Company Number: ES-MERCK-0901USA01267

PATIENT
  Age: 66 Year
  Sex: Male
  Weight: 80 kg

DRUGS (1)
  1. ISENTRESS [Suspect]
     Route: 065

REACTIONS (1)
  - METASTATIC SQUAMOUS CELL CARCINOMA [None]
